FAERS Safety Report 7777219-5 (Version None)
Quarter: 2011Q3

REPORT INFORMATION
  Report Type: 
  Country: None (occurrence: None)
  Receive Date: 20110926
  Receipt Date: 20110912
  Transmission Date: 20111222
  Serious: Yes (Other)
  Sender: FDA-Public Use
  Company Number: PHHY2011AU81861

PATIENT
  Age: 61 Year
  Sex: Male

DRUGS (7)
  1. VALGANCICLOVIR [Concomitant]
  2. CIPROFLOXACIN [Concomitant]
  3. TACROLIMUS [Concomitant]
     Indication: RENAL TRANSPLANT
  4. ANTIBIOTICS [Concomitant]
  5. IMMUNOGLOBULINS [Concomitant]
  6. MYCOPHENOLIC ACID [Suspect]
     Indication: RENAL TRANSPLANT
  7. LEFLUNOMIDE [Concomitant]

REACTIONS (14)
  - NEPHROPATHY TOXIC [None]
  - STAPHYLOCOCCAL INFECTION [None]
  - HEPATITIS [None]
  - BK VIRUS INFECTION [None]
  - RENAL IMPAIRMENT [None]
  - RENAL HYPERTENSION [None]
  - PYREXIA [None]
  - BACK PAIN [None]
  - IMMUNE RECONSTITUTION SYNDROME [None]
  - FEBRILE NEUTROPENIA [None]
  - CD4 LYMPHOCYTES DECREASED [None]
  - POLYOMAVIRUS-ASSOCIATED NEPHROPATHY [None]
  - CYTOMEGALOVIRUS INFECTION [None]
  - HYPOGAMMAGLOBULINAEMIA [None]
